FAERS Safety Report 6504543-6 (Version None)
Quarter: 2009Q4

REPORT INFORMATION
  Report Type: 
  Country: None (occurrence: None)
  Receive Date: 20091215
  Receipt Date: 20091204
  Transmission Date: 20100525
  Serious: Yes (Hospitalization)
  Sender: FDA-Public Use
  Company Number: 2009AC000283

PATIENT
  Age: 59 Year
  Sex: Female

DRUGS (44)
  1. DIGOXIN [Suspect]
     Dosage: 0.125 MG;QD;PO
     Route: 048
     Dates: start: 20070501
  2. ULTRACET [Concomitant]
  3. LANTUS [Concomitant]
  4. PLAVIX [Concomitant]
  5. CHANTIX [Concomitant]
  6. DEPAKOTE [Concomitant]
  7. LOPID [Concomitant]
  8. MICRO-K [Concomitant]
  9. LASIX [Concomitant]
  10. XANAX [Concomitant]
  11. GENTAMICIN [Concomitant]
  12. PREMARIN [Concomitant]
  13. IMDUR [Concomitant]
  14. EFFEXOR [Concomitant]
  15. PREVACID [Concomitant]
  16. LANTUS [Concomitant]
  17. ATROVENT [Concomitant]
  18. ATIVAN [Concomitant]
  19. VERAPAMIL [Concomitant]
  20. XANEX [Concomitant]
  21. OXYCONTIN [Concomitant]
  22. AMITRIPTYLINE [Concomitant]
  23. EFFEXOR [Concomitant]
  24. NYSTAIN [Concomitant]
  25. CLONAZEPAM [Concomitant]
  26. ALPRAZOLAM [Concomitant]
  27. MORPHINE [Concomitant]
  28. NICODERM [Concomitant]
  29. OXYCODONE [Concomitant]
  30. FUROSEMIDE [Concomitant]
  31. SUCRALFATE [Concomitant]
  32. TRAMADOL [Concomitant]
  33. GABAPENTIN [Concomitant]
  34. HYROXYZINE [Concomitant]
  35. TEMAZEPAM [Concomitant]
  36. ACETAMINOPHEN [Concomitant]
  37. KLOR-CON [Concomitant]
  38. PREMARIN [Concomitant]
  39. LORAZEPAM [Concomitant]
  40. ZOLPIDEM TARTRATE [Concomitant]
  41. VERAPAMIL [Concomitant]
  42. OMEPRAZOLE [Concomitant]
  43. BISCODYL [Concomitant]
  44. SERTRALINE HCL [Concomitant]

REACTIONS (33)
  - ABDOMINAL PAIN [None]
  - ANGINA PECTORIS [None]
  - ARRHYTHMIA [None]
  - ASTHMA [None]
  - ATRIAL TACHYCARDIA [None]
  - BACK PAIN [None]
  - CARDIAC FAILURE CONGESTIVE [None]
  - CATARACT [None]
  - CONTUSION [None]
  - CYSTITIS [None]
  - DELUSION [None]
  - DEMENTIA [None]
  - DEPRESSION [None]
  - DIABETES MELLITUS [None]
  - DIABETES MELLITUS INADEQUATE CONTROL [None]
  - DIARRHOEA [None]
  - DISORIENTATION [None]
  - ECONOMIC PROBLEM [None]
  - FALL [None]
  - FATIGUE [None]
  - HALLUCINATION [None]
  - HYPONATRAEMIA [None]
  - INSOMNIA [None]
  - MEMORY IMPAIRMENT [None]
  - MULTIPLE INJURIES [None]
  - MYOCARDIAL INFARCTION [None]
  - OVERDOSE [None]
  - PERIPHERAL VASCULAR DISORDER [None]
  - SURGERY [None]
  - TACHYCARDIA PAROXYSMAL [None]
  - THERAPEUTIC AGENT TOXICITY [None]
  - TROPONIN INCREASED [None]
  - VISUAL IMPAIRMENT [None]
